FAERS Safety Report 14589551 (Version 3)
Quarter: 2018Q2

REPORT INFORMATION
  Report Type: Spontaneous
  Country: JP (occurrence: JP)
  Receive Date: 20180302
  Receipt Date: 20180411
  Transmission Date: 20180711
  Serious: Yes (Hospitalization)
  Sender: FDA-Public Use
  Company Number: JP-ROCHE-2083032

PATIENT
  Age: 40 Year
  Sex: Female

DRUGS (1)
  1. TAMIFLU [Suspect]
     Active Substance: OSELTAMIVIR PHOSPHATE
     Indication: ANTIVIRAL PROPHYLAXIS
     Route: 048
     Dates: start: 20180201, end: 20180220

REACTIONS (2)
  - Colitis ischaemic [Recovering/Resolving]
  - Incorrect drug administration duration [Unknown]

NARRATIVE: CASE EVENT DATE: 20180221
